FAERS Safety Report 5034735-7 (Version None)
Quarter: 2006Q2

REPORT INFORMATION
  Report Type: 
  Country: None (occurrence: None)
  Receive Date: 20060620
  Receipt Date: 20060609
  Transmission Date: 20061013
  Serious: Yes (Hospitalization)
  Sender: FDA-Public Use
  Company Number: HQWYE196613JUN06

PATIENT
  Age: 18 Year
  Sex: Female

DRUGS (9)
  1. RAPAMUNE [Suspect]
     Indication: PROPHYLAXIS AGAINST TRANSPLANT REJECTION
     Dosage: 4 MG 1X PER 1 DAY; UNKNOWN
     Route: 048
     Dates: start: 20051103, end: 20060419
  2. RAPAMUNE [Suspect]
     Indication: PROPHYLAXIS AGAINST TRANSPLANT REJECTION
     Dosage: 4 MG 1X PER 1 DAY; UNKNOWN
     Route: 048
     Dates: start: 20060420
  3. MYCOPHENOLATE MOFETIL [Concomitant]
  4. PREDNISONE [Concomitant]
  5. NIFEDIPINE [Concomitant]
  6. PROPRANOLOL [Concomitant]
  7. RANITIDINE [Concomitant]
  8. COTRIM [Concomitant]
  9. CLOXACILLIN (CLOXACILLIN) [Concomitant]

REACTIONS (2)
  - ARTERIOVENOUS FISTULA SITE HAEMORRHAGE [None]
  - WOUND INFECTION [None]
